FAERS Safety Report 5557842-9 (Version None)
Quarter: 2007Q4

REPORT INFORMATION
  Report Type: 
  Country: None (occurrence: None)
  Receive Date: 20071130
  Receipt Date: 20070913
  Transmission Date: 20080405
  Serious: No
  Sender: FDA-Public Use
  Company Number: US200708006039

PATIENT
  Age: 71 Year
  Sex: Female
  Weight: 131.5 kg

DRUGS (9)
  1. BYETTA [Suspect]
     Indication: TYPE 2 DIABETES MELLITUS
     Dosage: 5 UG, 2/D, SUBCUTANEOUS, 10 UG, 2/D, SUBCUTANEOUS
     Route: 058
     Dates: start: 20070501, end: 20070501
  2. BYETTA [Suspect]
     Indication: TYPE 2 DIABETES MELLITUS
     Dosage: 5 UG, 2/D, SUBCUTANEOUS, 10 UG, 2/D, SUBCUTANEOUS
     Route: 058
     Dates: start: 20070601
  3. ACTOS [Concomitant]
  4. METFORMIN HCL [Concomitant]
  5. FUROSEMIDE [Concomitant]
  6. DIOVAN (HYDROCHLOROTHIAZIDE, VALSARTAN) [Concomitant]
  7. CLONIDINE [Concomitant]
  8. VYTORIN [Concomitant]
  9. OMACOR [Concomitant]

REACTIONS (3)
  - GOUT [None]
  - PAIN IN EXTREMITY [None]
  - WEIGHT DECREASED [None]
